FAERS Safety Report 17409335 (Version 3)
Quarter: 2020Q1

REPORT INFORMATION
  Report Type: Report from Study
  Country: US (occurrence: US)
  Receive Date: 20200212
  Receipt Date: 20200302
  Transmission Date: 20200409
  Serious: Yes (Death, Hospitalization)
  Sender: FDA-Public Use
  Company Number: US-ROCHE-2544298

PATIENT
  Age: 87 Year
  Sex: Male
  Weight: 92.6 kg

DRUGS (22)
  1. ASPIRIN [ACETYLSALICYLIC ACID] [Concomitant]
     Active Substance: ASPIRIN
  2. NIFEDIPINE. [Concomitant]
     Active Substance: NIFEDIPINE
  3. ONDANSETRON [Concomitant]
     Active Substance: ONDANSETRON
  4. OBINUTUZUMAB. [Suspect]
     Active Substance: OBINUTUZUMAB
     Indication: CHRONIC LYMPHOCYTIC LEUKAEMIA
     Dosage: 100 MG CYCLE 1, DAY 1; 900 MG CYCLE 1 DAY 2; 1000 MG CYCLE 1 DAY 8 AND CYCLE 1 DAY 15, CYCLE 2-6, DA
     Route: 042
     Dates: start: 20200116
  5. ALLOPURINOL. [Concomitant]
     Active Substance: ALLOPURINOL
  6. DOXYCYCLINE. [Concomitant]
     Active Substance: DOXYCYCLINE
  7. THIAMINE. [Concomitant]
     Active Substance: THIAMINE
  8. GLIMEPIRIDE. [Concomitant]
     Active Substance: GLIMEPIRIDE
  9. APIXABAN [Concomitant]
     Active Substance: APIXABAN
  10. LOSARTAN. [Concomitant]
     Active Substance: LOSARTAN
  11. FENOFIBRATE. [Concomitant]
     Active Substance: FENOFIBRATE
  12. METFORMIN [Concomitant]
     Active Substance: METFORMIN HYDROCHLORIDE
     Route: 065
  13. IBRUTINIB [Suspect]
     Active Substance: IBRUTINIB
     Indication: CHRONIC LYMPHOCYTIC LEUKAEMIA
     Dosage: FOR 15 CYCLES
     Route: 048
     Dates: start: 20200116
  14. LIRAGLUTIDE [Concomitant]
     Active Substance: LIRAGLUTIDE
  15. NITROGLYCERIN. [Concomitant]
     Active Substance: NITROGLYCERIN
  16. PROCHLORPERAZINE. [Concomitant]
     Active Substance: PROCHLORPERAZINE
  17. TAMSULOSIN [Concomitant]
     Active Substance: TAMSULOSIN
  18. VITAMIN C [Concomitant]
     Active Substance: ASCORBIC ACID
  19. FERROUS SULFATE. [Concomitant]
     Active Substance: FERROUS SULFATE
  20. INSULIN GLARGINE [Concomitant]
     Active Substance: INSULIN GLARGINE
  21. ROSUVASTATIN. [Concomitant]
     Active Substance: ROSUVASTATIN
  22. FUROSEMIDE. [Concomitant]
     Active Substance: FUROSEMIDE

REACTIONS (5)
  - Dyspnoea [Unknown]
  - Angina pectoris [Recovering/Resolving]
  - Sepsis [Fatal]
  - Acute kidney injury [Recovering/Resolving]
  - Myocardial infarction [Recovering/Resolving]

NARRATIVE: CASE EVENT DATE: 20200116
